FAERS Safety Report 14210282 (Version 1)
Quarter: 2017Q4

REPORT INFORMATION
  Report Type: Spontaneous
  Country: US (occurrence: US)
  Receive Date: 20171121
  Receipt Date: 20171121
  Transmission Date: 20180321
  Serious: Yes (Hospitalization)
  Sender: FDA-Public Use
  Company Number: US-JNJFOC-20171123214

PATIENT
  Age: 76 Year
  Sex: Male

DRUGS (6)
  1. SODIUM BICARBONATE. [Concomitant]
     Active Substance: SODIUM BICARBONATE
  2. ASPIRIN. [Concomitant]
     Active Substance: ASPIRIN
  3. ISOSORBIDE DINITRATE. [Concomitant]
     Active Substance: ISOSORBIDE DINITRATE
  4. METFORMIN [Concomitant]
     Active Substance: METFORMIN HYDROCHLORIDE
  5. IMBRUVICA [Suspect]
     Active Substance: IBRUTINIB
     Indication: MANTLE CELL LYMPHOMA
     Route: 048
     Dates: start: 20170828, end: 201710
  6. CARVEDILOL. [Concomitant]
     Active Substance: CARVEDILOL

REACTIONS (8)
  - Irritability [Unknown]
  - Insomnia [Recovering/Resolving]
  - Logorrhoea [Unknown]
  - Urinary tract infection [Recovering/Resolving]
  - Grandiosity [Unknown]
  - Personality change [Recovering/Resolving]
  - Cardiac failure [Unknown]
  - Agitation [Unknown]

NARRATIVE: CASE EVENT DATE: 20170925
